FAERS Safety Report 8120805-3 (Version None)
Quarter: 2012Q1

REPORT INFORMATION
  Report Type: 
  Country: None (occurrence: None)
  Receive Date: 20120207
  Receipt Date: 20120130
  Transmission Date: 20120608
  Serious: Yes (Hospitalization)
  Sender: FDA-Public Use
  Company Number: US-BAYER-2011-100455

PATIENT
  Age: 18 Year
  Sex: Female
  Weight: 51 kg

DRUGS (7)
  1. YAZ [Suspect]
     Indication: PREMENSTRUAL SYNDROME
  2. IMITREX [Concomitant]
     Dosage: 50 MG, PRN
     Dates: start: 20090921
  3. METRONIDAZOLE [Concomitant]
     Dosage: 500 MG, BID
     Route: 048
     Dates: start: 20090808
  4. YAZ [Suspect]
     Indication: ORAL CONTRACEPTION
     Dosage: UNK
     Route: 048
     Dates: start: 20070101, end: 20090101
  5. YAZ [Suspect]
     Indication: MENSTRUATION IRREGULAR
  6. CIPROFLOXACIN [Concomitant]
     Dosage: 500 MG, BID
     Route: 048
     Dates: start: 20090922
  7. ONDANSETRON [Concomitant]
     Dosage: 4 MG, UNK
     Route: 048
     Dates: start: 20090922

REACTIONS (8)
  - VOMITING [None]
  - CHOLECYSTITIS [None]
  - DIARRHOEA [None]
  - NAUSEA [None]
  - FEAR [None]
  - GALLBLADDER POLYP [None]
  - ABDOMINAL PAIN [None]
  - MIGRAINE [None]
